FAERS Safety Report 9374546 (Version 1)
Quarter: 2013Q2

REPORT INFORMATION
  Report Type: Spontaneous
  Country: TW (occurrence: TW)
  Receive Date: 20130628
  Receipt Date: 20130628
  Transmission Date: 20140414
  Serious: Yes (Other)
  Sender: FDA-Public Use
  Company Number: TW-BAYER-2013-077789

PATIENT
  Sex: Female

DRUGS (1)
  1. MIRENA [Suspect]
     Indication: UTERINE LEIOMYOMA
     Dosage: UNK
     Dates: start: 2011

REACTIONS (5)
  - Hypomenorrhoea [None]
  - Mood altered [None]
  - Bipolar I disorder [None]
  - Off label use [None]
  - Pre-existing condition improved [None]
